FAERS Safety Report 12627404 (Version 2)
Quarter: 2016Q3

REPORT INFORMATION
  Report Type: Spontaneous
  Country: US (occurrence: US)
  Receive Date: 20160805
  Receipt Date: 20160919
  Transmission Date: 20161109
  Serious: No
  Sender: FDA-Public Use
  Company Number: US-ASTRAZENECA-2016SE61424

PATIENT
  Age: 24663 Day
  Sex: Female
  Weight: 48.5 kg

DRUGS (8)
  1. ESTRADIOL. [Concomitant]
     Active Substance: ESTRADIOL
     Indication: HYSTERECTOMY
     Route: 061
     Dates: start: 1990
  2. NEXIUM [Suspect]
     Active Substance: ESOMEPRAZOLE MAGNESIUM
     Indication: GASTROOESOPHAGEAL REFLUX DISEASE
     Route: 048
     Dates: start: 2008, end: 20160109
  3. TENORMIN [Suspect]
     Active Substance: ATENOLOL
     Indication: MITRAL VALVE PROLAPSE
     Route: 048
     Dates: start: 1995
  4. INDURAL [Concomitant]
     Indication: MITRAL VALVE PROLAPSE
     Route: 065
     Dates: start: 1979, end: 1995
  5. VIVUELLE PATCH [Concomitant]
     Indication: HYSTERECTOMY
     Route: 061
     Dates: start: 1990
  6. TENORMIN [Suspect]
     Active Substance: ATENOLOL
     Indication: MITRAL VALVE PROLAPSE
     Dosage: GENERIC
     Route: 065
     Dates: start: 1995
  7. NEXIUM [Suspect]
     Active Substance: ESOMEPRAZOLE MAGNESIUM
     Indication: GASTROOESOPHAGEAL REFLUX DISEASE
     Dosage: MYLAN, 40 MG DAILY
     Route: 048
     Dates: start: 20160110, end: 20160111
  8. PEPCID OTC [Concomitant]
     Dates: start: 201602

REACTIONS (6)
  - Gastrooesophageal reflux disease [Unknown]
  - Abdominal discomfort [Unknown]
  - Fatigue [Unknown]
  - Abdominal pain upper [Unknown]
  - Activities of daily living impaired [Recovered/Resolved]
  - Dyspepsia [Unknown]

NARRATIVE: CASE EVENT DATE: 20160110
